FAERS Safety Report 9485878 (Version 1)
Quarter: 2013Q3

REPORT INFORMATION
  Report Type: Report from Study
  Country: AT (occurrence: AT)
  Receive Date: 20130829
  Receipt Date: 20130829
  Transmission Date: 20140515
  Serious: Yes (Other)
  Sender: FDA-Public Use
  Company Number: PHHY2013AT093201

PATIENT
  Age: 65 Year
  Sex: Male
  Weight: 100 kg

DRUGS (14)
  1. MYCOPHENOLIC ACID [Suspect]
     Indication: IMMUNOSUPPRESSION
     Dosage: 1440 MG/DAY
     Dates: start: 20121220
  2. MYCOPHENOLIC ACID [Suspect]
     Dosage: 1080 MG/DAY
     Dates: start: 20130313
  3. MYCOPHENOLIC ACID [Suspect]
     Dosage: 720 MG/DAY
     Dates: start: 20130626
  4. TACROLIMUS [Concomitant]
     Indication: IMMUNOSUPPRESSION
     Dosage: 7 MG
  5. TACROLIMUS [Concomitant]
     Dosage: 6 MG
     Dates: start: 20130313
  6. TACROLIMUS [Concomitant]
     Dosage: 5 MG
     Dates: start: 20130626
  7. LASIX [Concomitant]
     Indication: OEDEMA
     Dosage: 80 MG
  8. DILATREND [Concomitant]
     Indication: HYPERTENSION
     Dosage: 25 MG
     Dates: end: 20120529
  9. MIMPARA [Concomitant]
     Indication: HYPERPARATHYROIDISM
     Dosage: 30 MG, UNK
     Dates: end: 20130626
  10. PREDNISOLON [Concomitant]
     Indication: IMMUNOSUPPRESSION
     Dosage: 5 MG
  11. PREDNISOLON [Concomitant]
     Dosage: 2.5 MG
     Dates: start: 20130130
  12. PREDNISOLON [Concomitant]
     Dosage: 15 MG
     Dates: start: 20130626
  13. NORVASC [Concomitant]
     Indication: HYPERTENSION
     Dosage: 10 UKN
     Dates: end: 20130626
  14. BACTRIM FORTE [Concomitant]
     Indication: ANTIFUNGAL PROPHYLAXIS
     Dosage: 400/80 MG

REACTIONS (3)
  - Atrial fibrillation [Unknown]
  - Gastrointestinal disorder [Unknown]
  - Diarrhoea [Unknown]
